FAERS Safety Report 4488760-5 (Version None)
Quarter: 2004Q4

REPORT INFORMATION
  Report Type: 
  Country: None (occurrence: None)
  Receive Date: 20041029
  Receipt Date: 20041022
  Transmission Date: 20050328
  Serious: Yes (Other)
  Sender: FDA-Public Use
  Company Number: 2004-10-0149

PATIENT
  Age: 38 Year
  Sex: Male

DRUGS (2)
  1. BUPRENORPHINE HCL [Suspect]
     Indication: DRUG USE FOR UNKNOWN INDICATION
     Route: 042
  2. CLONAZEPAM [Concomitant]
     Indication: DRUG USE FOR UNKNOWN INDICATION
     Dosage: DOSAGE UNKNOWN
     Route: 065

REACTIONS (5)
  - HAEMOPTYSIS [None]
  - INTENTIONAL MISUSE [None]
  - LUNG NEOPLASM [None]
  - PULMONARY GRANULOMA [None]
  - SENSATION OF FOREIGN BODY [None]
